FAERS Safety Report 9289676 (Version 1)
Quarter: 2013Q2

REPORT INFORMATION
  Report Type: Spontaneous
  Country: US (occurrence: US)
  Receive Date: 20130515
  Receipt Date: 20130515
  Transmission Date: 20140414
  Serious: No
  Sender: FDA-Public Use
  Company Number: US-BIOGENIDEC-2013BI042392

PATIENT
  Age: 46 Year
  Sex: Female

DRUGS (1)
  1. TYSABRI [Suspect]
     Indication: MULTIPLE SCLEROSIS
     Route: 042
     Dates: start: 20130128

REACTIONS (7)
  - Weight increased [Not Recovered/Not Resolved]
  - Blood glucose increased [Unknown]
  - Muscle spasms [Recovered/Resolved]
  - Somnolence [Recovered/Resolved]
  - Peroneal nerve palsy [Recovered/Resolved]
  - Urticaria [Recovered/Resolved]
  - Multiple sclerosis relapse [Not Recovered/Not Resolved]
